FAERS Safety Report 10645047 (Version 1)
Quarter: 2014Q4

REPORT INFORMATION
  Report Type: Spontaneous
  Country: ES (occurrence: ES)
  Receive Date: 20141211
  Receipt Date: 20141211
  Transmission Date: 20150529
  Serious: Yes (Other)
  Sender: FDA-Public Use
  Company Number: ES-SUN PHARMACEUTICAL INDUSTRIES LTD-2014SUN02801

PATIENT

DRUGS (3)
  1. AVASTIN [Concomitant]
     Active Substance: BEVACIZUMAB
     Indication: RECTAL CANCER
     Dosage: UNK
     Route: 065
  2. OXALIPLATIN SUN 5 MG/ML POW FOR SOL FOR INFUSION [Suspect]
     Active Substance: OXALIPLATIN
     Indication: RECTAL CANCER
     Dosage: 130 MG/M2, DAY 1 EVERY 21 DAYS
     Route: 042
     Dates: start: 20140714, end: 20140714
  3. CAPECITABINE+RPT [Concomitant]
     Indication: RECTAL CANCER
     Dosage: UNK
     Dates: start: 20111009, end: 20120124

REACTIONS (5)
  - Vomiting [Recovered/Resolved]
  - Hypotension [Recovered/Resolved]
  - Oxygen saturation decreased [Recovered/Resolved]
  - Rash macular [Recovered/Resolved]
  - Back pain [Recovered/Resolved]

NARRATIVE: CASE EVENT DATE: 20140714
